FAERS Safety Report 4535561-5 (Version None)
Quarter: 2004Q4

REPORT INFORMATION
  Report Type: 
  Country: None (occurrence: None)
  Receive Date: 20041214
  Receipt Date: 20040930
  Transmission Date: 20050328
  Serious: Yes (Other)
  Sender: FDA-Public Use
  Company Number: 2004236766US

PATIENT

DRUGS (1)
  1. BEXTRA [Suspect]

REACTIONS (3)
  - CATARACT [None]
  - MYOPIA [None]
  - OSTEOMYELITIS [None]
